FAERS Safety Report 17757082 (Version 1)
Quarter: 2020Q2

REPORT INFORMATION
  Report Type: Spontaneous
  Country: JP (occurrence: JP)
  Receive Date: 20200507
  Receipt Date: 20200507
  Transmission Date: 20200714
  Serious: Yes (Other)
  Sender: FDA-Public Use
  Company Number: JP-BAYER-2020-072168

PATIENT
  Age: 78 Year
  Sex: Male

DRUGS (4)
  1. LENVATINIB MESILATE [Concomitant]
     Active Substance: LENVATINIB MESYLATE
     Dosage: 4 MG, QD
  2. LENVATINIB MESILATE [Concomitant]
     Active Substance: LENVATINIB MESYLATE
     Dosage: 8 MG, QD
     Dates: start: 201804
  3. NEXAVAR [Suspect]
     Active Substance: SORAFENIB
     Indication: HEPATOCELLULAR CARCINOMA
     Dosage: UNK
     Dates: start: 201605
  4. STIVARGA [Suspect]
     Active Substance: REGORAFENIB
     Indication: HEPATOCELLULAR CARCINOMA
     Dosage: UNK
     Dates: start: 201708

REACTIONS (2)
  - Hypertension [None]
  - Truncus coeliacus thrombosis [None]
